FAERS Safety Report 24613351 (Version 2)
Quarter: 2024Q4

REPORT INFORMATION
  Report Type: Report from Study
  Country: US (occurrence: US)
  Receive Date: 20241113
  Receipt Date: 20241218
  Transmission Date: 20250115
  Serious: Yes (Hospitalization, Other)
  Sender: AURINIA PHARMACEUTICALS
  Company Number: US-OTSUKA PHARMACEUTICAL NETHERLANDS B.V.-AUR-007161

PATIENT
  Age: 39 Year
  Sex: Female

DRUGS (1)
  1. LUPKYNIS [Suspect]
     Active Substance: VOCLOSPORIN
     Indication: Systemic lupus erythematosus
     Dosage: 23.7 MILLIGRAM, BID
     Route: 048
     Dates: start: 20240909

REACTIONS (4)
  - Vomiting [Unknown]
  - Systemic lupus erythematosus [Unknown]
  - Blood pressure abnormal [Unknown]
  - Gastritis [Unknown]

NARRATIVE: CASE EVENT DATE: 20241101
